FAERS Safety Report 12224686 (Version 1)
Quarter: 2016Q1

REPORT INFORMATION
  Report Type: Spontaneous
  Country: US (occurrence: None)
  Receive Date: 20160330
  Receipt Date: 20160330
  Transmission Date: 20160526
  Serious: Yes (Death)
  Sender: FDA-Public Use
  Company Number: None

PATIENT
  Age: 62 Year
  Sex: Female
  Weight: 58.97 kg

DRUGS (7)
  1. WELLBUTRIN [Concomitant]
     Active Substance: BUPROPION HYDROCHLORIDE
  2. PSYCHIATRIC MEDICATIONS [Concomitant]
     Active Substance: UNSPECIFIED INGREDIENT
  3. REMERON [Suspect]
     Active Substance: MIRTAZAPINE
     Indication: DEPRESSION
     Dosage: AT BEDTIME
     Route: 048
     Dates: start: 20151215, end: 20160219
  4. CELEXA [Concomitant]
     Active Substance: CITALOPRAM HYDROBROMIDE
  5. ATIVAN [Concomitant]
     Active Substance: LORAZEPAM
  6. BUSPAR [Concomitant]
     Active Substance: BUSPIRONE HYDROCHLORIDE
  7. CPAP [Concomitant]
     Active Substance: DEVICE

REACTIONS (1)
  - Completed suicide [None]

NARRATIVE: CASE EVENT DATE: 20160219
